FAERS Safety Report 13217927 (Version 1)
Quarter: 2017Q1

REPORT INFORMATION
  Report Type: Spontaneous
  Country: US (occurrence: US)
  Receive Date: 20170210
  Receipt Date: 20170210
  Transmission Date: 20170428
  Serious: Yes (Other)
  Sender: FDA-Public Use
  Company Number: US-BRISTOL-MYERS SQUIBB COMPANY-BMS-2017-009725

PATIENT
  Age: 74 Year
  Sex: Female

DRUGS (1)
  1. OPDIVO [Suspect]
     Active Substance: NIVOLUMAB
     Indication: LUNG NEOPLASM MALIGNANT
     Dosage: 240 MG, UNK
     Route: 042
     Dates: start: 20160212, end: 20170117

REACTIONS (6)
  - Neuropathy peripheral [Unknown]
  - Arthralgia [Unknown]
  - Dry skin [Unknown]
  - Joint swelling [Unknown]
  - Contusion [Unknown]
  - Skin exfoliation [Unknown]
